FAERS Safety Report 10950069 (Version 1)
Quarter: 2015Q1

REPORT INFORMATION
  Report Type: Spontaneous
  Country: US (occurrence: None)
  Receive Date: 20150323
  Receipt Date: 20150323
  Transmission Date: 20150721
  Serious: No
  Sender: FDA-Public Use
  Company Number: None

PATIENT
  Sex: Female
  Weight: 71.22 kg

DRUGS (1)
  1. LEVOFLOXACIN 750 [Suspect]
     Active Substance: LEVOFLOXACIN
     Indication: URINARY TRACT INFECTION
     Dosage: 2 PILLS TWICE DAILY TAKEN BY MOUTH
     Route: 048
     Dates: start: 20150320, end: 20150322

REACTIONS (5)
  - Irritability [None]
  - Dysphagia [None]
  - Oropharyngeal pain [None]
  - Pharyngeal oedema [None]
  - Sleep disorder [None]

NARRATIVE: CASE EVENT DATE: 20150321
